FAERS Safety Report 21699746 (Version 18)
Quarter: 2024Q4

REPORT INFORMATION
  Report Type: Spontaneous
  Country: US (occurrence: US)
  Receive Date: 20221208
  Receipt Date: 20241104
  Transmission Date: 20250115
  Serious: Yes (Other)
  Sender: PFIZER
  Company Number: US-PFIZER INC-202200611506

PATIENT
  Age: 75 Year
  Sex: Female
  Weight: 102.09 kg

DRUGS (11)
  1. IBRANCE [Suspect]
     Active Substance: PALBOCICLIB
     Indication: Breast cancer metastatic
     Dosage: UNK
     Dates: start: 20211013
  2. IBRANCE [Suspect]
     Active Substance: PALBOCICLIB
     Dosage: DAILY, STARTING CYCLE 3
     Dates: end: 202211
  3. IBRANCE [Suspect]
     Active Substance: PALBOCICLIB
     Dosage: DAILY FOR 3 WEEKS ON/2 WEEKS OFF
     Route: 048
     Dates: start: 202211
  4. IBRANCE [Suspect]
     Active Substance: PALBOCICLIB
     Dosage: DAILY FROM DAY 1-21, AND OFF IBRANCE FOR TWO WEEKS
     Route: 048
     Dates: start: 20240705
  5. IBRANCE [Suspect]
     Active Substance: PALBOCICLIB
     Dosage: DAILY FROM DAY 1-21, AND OFF IBRANCE FOR TWO WEEKS
     Route: 048
     Dates: start: 20240816
  6. IBRANCE [Suspect]
     Active Substance: PALBOCICLIB
     Dosage: ONCE DAILY WITH FOOD ON DAYS 1-21 FOLLOWED BY 14 DAYS OFF
     Route: 048
  7. FULVESTRANT [Suspect]
     Active Substance: FULVESTRANT
     Indication: Breast cancer metastatic
     Dosage: UNK
     Dates: start: 20211013
  8. METFORMIN [Concomitant]
     Active Substance: METFORMIN HYDROCHLORIDE
     Dosage: 500 MG, 1X/DAY
  9. METOPROLOL [Concomitant]
     Active Substance: METOPROLOL
     Dosage: 50 MG, 1X/DAY
  10. ATORVASTATIN [Concomitant]
     Active Substance: ATORVASTATIN
     Dosage: 20 MILLIGRAMS ONCE A DAY
  11. OLMESARTAN [Concomitant]
     Active Substance: OLMESARTAN
     Dosage: UNK

REACTIONS (6)
  - Neutropenia [Unknown]
  - Back disorder [Unknown]
  - Fall [Unknown]
  - Back pain [Unknown]
  - Musculoskeletal pain [Unknown]
  - Neoplasm progression [Recovering/Resolving]

NARRATIVE: CASE EVENT DATE: 20240311
